FAERS Safety Report 17979000 (Version 1)
Quarter: 2020Q3

REPORT INFORMATION
  Report Type: Report from Study
  Country: IT (occurrence: IT)
  Receive Date: 20200703
  Receipt Date: 20200703
  Transmission Date: 20201103
  Serious: Yes (Hospitalization)
  Sender: FDA-Public Use
  Company Number: IT-TEVA-2020-IT-1794022

PATIENT
  Age: 56 Year
  Sex: Female

DRUGS (4)
  1. FERRO?GRAD C [Concomitant]
  2. QUETIAPINE. [Suspect]
     Active Substance: QUETIAPINE
     Indication: BIPOLAR DISORDER
     Dosage: 15000 MG
     Route: 048
     Dates: start: 20200503, end: 20200503
  3. CARBOLITHIUM 150 MG CAPSULE RIGIDE [Concomitant]
     Active Substance: LITHIUM CARBONATE
  4. ATENOLOL. [Concomitant]
     Active Substance: ATENOLOL

REACTIONS (5)
  - Drug abuse [Recovering/Resolving]
  - Vomiting [Recovering/Resolving]
  - Dizziness [Recovering/Resolving]
  - Confusional state [Recovering/Resolving]
  - Intentional self-injury [Recovering/Resolving]

NARRATIVE: CASE EVENT DATE: 20200503
